FAERS Safety Report 9360446 (Version 1)
Quarter: 2013Q2

REPORT INFORMATION
  Report Type: Spontaneous
  Country: US (occurrence: US)
  Receive Date: 20130621
  Receipt Date: 20130621
  Transmission Date: 20140414
  Serious: No
  Sender: FDA-Public Use
  Company Number: US-US-EMD SERONO, INC.-7038155

PATIENT
  Sex: Female

DRUGS (2)
  1. REBIF [Suspect]
     Indication: PRODUCT USED FOR UNKNOWN INDICATION
     Dates: start: 20071128
  2. REBIF [Suspect]

REACTIONS (7)
  - Heart rate increased [Not Recovered/Not Resolved]
  - Anxiety [Unknown]
  - Insomnia [Recovered/Resolved]
  - Dyspnoea exertional [Unknown]
  - Urinary retention [Unknown]
  - Asthenia [Recovered/Resolved]
  - Pollakiuria [Recovered/Resolved]
